FAERS Safety Report 18700845 (Version 1)
Quarter: 2021Q1

REPORT INFORMATION
  Report Type: Spontaneous
  Country: GB (occurrence: GB)
  Receive Date: 20210105
  Receipt Date: 20210105
  Transmission Date: 20210419
  Serious: Yes (Other)
  Sender: FDA-Public Use
  Company Number: GB-MYLANLABS-2020M1106549

PATIENT
  Age: 36 Year
  Sex: Male

DRUGS (4)
  1. LEVOFLOXACIN. [Suspect]
     Active Substance: LEVOFLOXACIN
     Indication: PRODUCT USED FOR UNKNOWN INDICATION
     Dosage: 500 MILLIGRAM, QD
     Dates: start: 20201126
  2. LANSOPRAZOLE. [Concomitant]
     Active Substance: LANSOPRAZOLE
     Dosage: TO BE TAKEN TWICE A DAY FOR ONE WEEK, THEN ONE TABLET DAILY AFTER THIS
     Dates: start: 20201126
  3. AMOXICILLIN. [Concomitant]
     Active Substance: AMOXICILLIN
     Dosage: 4 DOSAGE FORM, QD (FOR 7 DAYS.)
     Dates: start: 20201126, end: 20201203
  4. ZEROBASE                           /00103901/ [Concomitant]
     Dosage: USE LIBERALLY FOUR TIMES A DAY.
     Dates: start: 20190916

REACTIONS (2)
  - Lip swelling [Recovering/Resolving]
  - Rash [Recovering/Resolving]

NARRATIVE: CASE EVENT DATE: 20201215
